FAERS Safety Report 11362311 (Version 5)
Quarter: 2016Q2

REPORT INFORMATION
  Report Type: Spontaneous
  Country: US (occurrence: US)
  Receive Date: 20150810
  Receipt Date: 20160616
  Transmission Date: 20160815
  Serious: Yes (Other)
  Sender: FDA-Public Use
  Company Number: US-009507513-1508USA000658

PATIENT
  Age: 26 Year
  Sex: Female

DRUGS (1)
  1. IMPLANON [Suspect]
     Active Substance: ETONOGESTREL
     Indication: CONTRACEPTION
     Dosage: UNK
     Route: 059

REACTIONS (8)
  - Pregnancy with implant contraceptive [Recovered/Resolved]
  - Breech presentation [Unknown]
  - Gestational diabetes [Unknown]
  - Alpha 1 foetoprotein abnormal [Unknown]
  - Premature delivery [Recovered/Resolved]
  - Caesarean section [Unknown]
  - Unintended pregnancy [Recovered/Resolved]
  - Drug screen positive [Unknown]

NARRATIVE: CASE EVENT DATE: 20150801
